FAERS Safety Report 16320427 (Version 1)
Quarter: 2019Q2

REPORT INFORMATION
  Report Type: Report from Study
  Country: US (occurrence: US)
  Receive Date: 20190516
  Receipt Date: 20190516
  Transmission Date: 20190711
  Serious: Yes (Other)
  Sender: FDA-Public Use
  Company Number: PHEH2019US020057

PATIENT
  Age: 62 Year
  Sex: Male

DRUGS (1)
  1. GLATOPA [Suspect]
     Active Substance: GLATIRAMER ACETATE
     Indication: MULTIPLE SCLEROSIS
     Dosage: 40 MG, TIW
     Route: 058
     Dates: start: 20190508

REACTIONS (6)
  - Product administration error [Not Recovered/Not Resolved]
  - Dizziness [Unknown]
  - Hyperhidrosis [Unknown]
  - Injection site pain [Not Recovered/Not Resolved]
  - Syncope [Unknown]
  - Device issue [Not Recovered/Not Resolved]

NARRATIVE: CASE EVENT DATE: 20190508
